FAERS Safety Report 18619185 (Version 1)
Quarter: 2020Q4

REPORT INFORMATION
  Report Type: Spontaneous
  Country: JP (occurrence: JP)
  Receive Date: 20201215
  Receipt Date: 20201215
  Transmission Date: 20210114
  Serious: Yes (Other)
  Sender: FDA-Public Use
  Company Number: JP-OTSUKA-2020_031321AA

PATIENT
  Age: 10 Decade
  Sex: Female

DRUGS (8)
  1. WARFARIN [Interacting]
     Active Substance: WARFARIN
     Indication: ATRIAL FIBRILLATION
     Dosage: 0.5 MG, QD
     Route: 065
  2. WARFARIN [Interacting]
     Active Substance: WARFARIN
     Indication: CHRONIC KIDNEY DISEASE
     Dosage: 1 MG, QD
     Route: 065
  3. SAMSCA [Suspect]
     Active Substance: TOLVAPTAN
     Indication: CARDIAC FAILURE
     Dosage: 15 MG, QD
     Route: 065
  4. FUROSEMIDE. [Concomitant]
     Active Substance: FUROSEMIDE
     Indication: CARDIAC FAILURE ACUTE
     Dosage: UNK
     Route: 042
  5. SAMSCA [Interacting]
     Active Substance: TOLVAPTAN
     Dosage: 7.5 MG, QD
     Route: 065
  6. WARFARIN [Interacting]
     Active Substance: WARFARIN
     Dosage: 1 MG, QD
     Route: 065
  7. SAMSCA [Interacting]
     Active Substance: TOLVAPTAN
     Dosage: 7.5 MG, QD
     Route: 065
  8. CARPERITIDE [Concomitant]
     Active Substance: CARPERITIDE
     Indication: CARDIAC FAILURE ACUTE
     Dosage: UNK
     Route: 042

REACTIONS (2)
  - Drug interaction [Unknown]
  - Cerebral artery embolism [Unknown]
